FAERS Safety Report 25751766 (Version 1)
Quarter: 2025Q3

REPORT INFORMATION
  Report Type: Report from Study
  Country: CA (occurrence: CA)
  Receive Date: 20250902
  Receipt Date: 20250902
  Transmission Date: 20251021
  Serious: Yes (Death, Hospitalization)
  Sender: ALEXION PHARMACEUTICALS
  Company Number: CA-AstraZeneca-CH-00930457A

PATIENT
  Sex: Female

DRUGS (1)
  1. OSIMERTINIB [Suspect]
     Active Substance: OSIMERTINIB
     Indication: Non-small cell lung cancer metastatic
     Dates: start: 20250312, end: 20250512

REACTIONS (18)
  - Depressed level of consciousness [Fatal]
  - Hypophagia [Fatal]
  - General physical health deterioration [Fatal]
  - Pulmonary embolism [Fatal]
  - Deep vein thrombosis [Fatal]
  - Herpes simplex [Fatal]
  - Oral candidiasis [Fatal]
  - Cytopenia [Fatal]
  - Urinary retention [Fatal]
  - Metastases to central nervous system [Fatal]
  - Eastern Cooperative Oncology Group performance status worsened [Fatal]
  - Dysphagia [Fatal]
  - Hypoxia [Fatal]
  - Hypotension [Fatal]
  - Tumour haemorrhage [Fatal]
  - Hepatic lesion [Fatal]
  - Pulmonary mass [Fatal]
  - Metastases to bone [Fatal]
